FAERS Safety Report 6765130-8 (Version None)
Quarter: 2010Q2

REPORT INFORMATION
  Report Type: 
  Country: None (occurrence: None)
  Receive Date: 20100609
  Receipt Date: 20100609
  Transmission Date: 20101027
  Serious: Yes (Hospitalization)
  Sender: FDA-Public Use
  Company Number: None

PATIENT
  Sex: Male
  Weight: 22.6799 kg

DRUGS (1)
  1. LORAZEPAM [Suspect]
     Indication: DENTAL DISORDER PROPHYLAXIS
     Dosage: 2 MG ONCE PO
     Route: 048
     Dates: start: 20100510

REACTIONS (8)
  - ABNORMAL BEHAVIOUR [None]
  - AGITATION [None]
  - CRYING [None]
  - FEAR [None]
  - HALLUCINATION, VISUAL [None]
  - NO THERAPEUTIC RESPONSE [None]
  - PANIC REACTION [None]
  - SOMNOLENCE [None]
